FAERS Safety Report 8846956 (Version 1)
Quarter: 2012Q4

REPORT INFORMATION
  Report Type: Spontaneous
  Country: US (occurrence: None)
  Receive Date: 20121017
  Receipt Date: 20121017
  Transmission Date: 20130627
  Serious: Yes (Other)
  Sender: FDA-Public Use
  Company Number: None

PATIENT
  Age: 53 Year
  Sex: Female
  Weight: 63.5 kg

DRUGS (1)
  1. LEXISCAN [Suspect]
     Indication: CHEST PAIN
     Route: 042
     Dates: start: 20121014, end: 20121014

REACTIONS (7)
  - Chest pain [None]
  - Dyspnoea [None]
  - Hyperhidrosis [None]
  - Headache [None]
  - Chest discomfort [None]
  - Vomiting [None]
  - Pain in jaw [None]
